FAERS Safety Report 4267576-9 (Version None)
Quarter: 2004Q1

REPORT INFORMATION
  Report Type: 
  Country: None (occurrence: None)
  Receive Date: 20040109
  Receipt Date: 20030904
  Transmission Date: 20041129
  Serious: No
  Sender: FDA-Public Use
  Company Number: US-GLAXOSMITHKLINE-A0424713A

PATIENT
  Age: 48 Year
  Sex: Female

DRUGS (6)
  1. WELLBUTRIN [Suspect]
     Indication: DEPRESSION
     Dosage: 200MG TWICE PER DAY
     Route: 048
     Dates: start: 20020501, end: 20030601
  2. EFFEXOR [Concomitant]
  3. VIVACTIL [Concomitant]
  4. LAMICTAL [Suspect]
     Indication: ILL-DEFINED DISORDER
     Dosage: 25MG PER DAY
     Route: 048
     Dates: start: 20030801, end: 20030901
  5. THYROID TAB [Concomitant]
  6. ELAVIL [Concomitant]

REACTIONS (2)
  - GINGIVITIS [None]
  - NAUSEA [None]
